FAERS Safety Report 6772746-1 (Version None)
Quarter: 2010Q2

REPORT INFORMATION
  Report Type: 
  Country: None (occurrence: None)
  Receive Date: 20100616
  Receipt Date: 20100601
  Transmission Date: 20101027
  Serious: Yes (Other)
  Sender: FDA-Public Use
  Company Number: GB-GENENTECH-300547

PATIENT
  Sex: Female
  Weight: 66.8 kg

DRUGS (4)
  1. XOLAIR [Suspect]
     Indication: ASTHMA
     Dosage: 225 MG, Q2W
     Route: 058
     Dates: start: 20091112, end: 20100225
  2. PREDNISOLONE [Concomitant]
     Indication: DRUG USE FOR UNKNOWN INDICATION
     Dosage: UNK
  3. SALBUTAMOL [Concomitant]
     Indication: DRUG USE FOR UNKNOWN INDICATION
     Dosage: UNK
  4. SYMBICORT [Concomitant]
     Indication: DRUG USE FOR UNKNOWN INDICATION
     Dosage: UNK

REACTIONS (2)
  - DRUG INEFFECTIVE [None]
  - PULMONARY FUNCTION TEST DECREASED [None]
